FAERS Safety Report 18473073 (Version 2)
Quarter: 2020Q4

REPORT INFORMATION
  Report Type: Spontaneous
  Country: AR (occurrence: AR)
  Receive Date: 20201106
  Receipt Date: 20201223
  Transmission Date: 20210114
  Serious: Yes (Other)
  Sender: FDA-Public Use
  Company Number: NVSC2020AR295809

PATIENT
  Age: 72 Year

DRUGS (1)
  1. SECUKINUMAB. [Suspect]
     Active Substance: SECUKINUMAB
     Indication: PSORIASIS
     Dosage: UNK (STARTED SINCE A YEAR AGO)
     Route: 065

REACTIONS (5)
  - Substance abuse [Unknown]
  - Tuberculin test positive [Unknown]
  - Mental disorder [Unknown]
  - Hepatitis B [Unknown]
  - Hypertension [Unknown]
